FAERS Safety Report 9815313 (Version 1)
Quarter: 2014Q1

REPORT INFORMATION
  Report Type: Report from Study
  Country: GB (occurrence: GB)
  Receive Date: 20140114
  Receipt Date: 20140114
  Transmission Date: 20141002
  Serious: Yes (Other)
  Sender: FDA-Public Use
  Company Number: GB-AMGEN-GBRCT2014002322

PATIENT
  Age: 48 Year
  Sex: Female
  Weight: 49.2 kg

DRUGS (5)
  1. ETANERCEPT [Suspect]
     Indication: PRODUCT USED FOR UNKNOWN INDICATION
     Dosage: 25 MG, 2 TIMES/WK
     Route: 065
     Dates: start: 20070905, end: 20090114
  2. ETANERCEPT [Suspect]
     Dosage: 25 MG, 2 TIMES/WK
     Route: 065
     Dates: start: 20090119, end: 20100303
  3. CYCLOSPORINE [Concomitant]
     Dosage: UNK
     Dates: start: 20070927
  4. HYDROXYZINE [Concomitant]
     Dosage: UNK
     Dates: start: 20070927
  5. IBUPROFEN [Concomitant]
     Dosage: UNK
     Dates: start: 20070927

REACTIONS (1)
  - Psoriasis [Recovered/Resolved]
